FAERS Safety Report 15067136 (Version 1)
Quarter: 2018Q2

REPORT INFORMATION
  Report Type: Spontaneous
  Country: US (occurrence: US)
  Receive Date: 20180626
  Receipt Date: 20180626
  Transmission Date: 20180711
  Serious: Yes (Other)
  Sender: FDA-Public Use
  Company Number: US-GLAXOSMITHKLINE-US2018110292

PATIENT
  Age: 64 Year
  Sex: Male

DRUGS (1)
  1. NICODERM CQ [Suspect]
     Active Substance: NICOTINE
     Indication: SMOKING CESSATION THERAPY
     Dosage: 14 MG, UNK

REACTIONS (6)
  - Nightmare [Recovering/Resolving]
  - Application site erythema [Recovering/Resolving]
  - Suicidal ideation [Recovering/Resolving]
  - Malaise [Unknown]
  - Application site pain [Recovering/Resolving]
  - Overdose [Unknown]
